FAERS Safety Report 20357699 (Version 1)
Quarter: 2022Q1

REPORT INFORMATION
  Report Type: Spontaneous
  Country: US (occurrence: US)
  Receive Date: 20220120
  Receipt Date: 20220120
  Transmission Date: 20220424
  Serious: No
  Sender: FDA-Public Use
  Company Number: US-NOVOPROD-842309

PATIENT
  Sex: Female

DRUGS (3)
  1. OZEMPIC [Suspect]
     Active Substance: SEMAGLUTIDE
     Indication: Product used for unknown indication
     Dosage: 0.5 MG
     Route: 058
     Dates: start: 20210716
  2. AMOXICILLIN [Concomitant]
     Active Substance: AMOXICILLIN
     Indication: Dental cleaning
     Dosage: UNK
  3. DIGOXIN [Concomitant]
     Active Substance: DIGOXIN
     Indication: Arrhythmia
     Dosage: UNK

REACTIONS (4)
  - Localised infection [Unknown]
  - Hangnail [Unknown]
  - Diarrhoea [Unknown]
  - Abdominal pain upper [Unknown]
